FAERS Safety Report 4376727-7 (Version None)
Quarter: 2004Q2

REPORT INFORMATION
  Report Type: 
  Country: None (occurrence: None)
  Receive Date: 20040609
  Receipt Date: 20040510
  Transmission Date: 20050107
  Serious: Yes (Hospitalization)
  Sender: FDA-Public Use
  Company Number: 2004213061US

PATIENT
  Sex: Male

DRUGS (7)
  1. BEXTRA [Suspect]
     Dosage: 20 MG, ORAL
     Route: 048
  2. HYDROCHLOROTHIAZIDE [Concomitant]
  3. ZOCOR [Concomitant]
  4. ATENOLOL [Concomitant]
  5. FLONASE [Concomitant]
  6. ADALAT [Concomitant]
  7. ACIPHEX [Concomitant]

REACTIONS (1)
  - BLOOD PRESSURE INCREASED [None]
